FAERS Safety Report 5102031-5 (Version None)
Quarter: 2006Q3

REPORT INFORMATION
  Report Type: 
  Country: None (occurrence: None)
  Receive Date: 20060731
  Receipt Date: 20060511
  Transmission Date: 20061208
  Serious: No
  Sender: FDA-Public Use
  Company Number: 2006PV013649

PATIENT
  Age: 2 Year
  Sex: Female
  Weight: 72.5755 kg

DRUGS (3)
  1. BYETTA [Suspect]
     Indication: DIABETES MELLITUS NON-INSULIN-DEPENDENT
     Dosage: 10 MCG; QD;SC
     Route: 058
     Dates: start: 20060401, end: 20060401
  2. HUMULN N [Concomitant]
  3. HUMALOG [Concomitant]

REACTIONS (2)
  - MALAISE [None]
  - VOMITING [None]
